FAERS Safety Report 9197429 (Version 5)
Quarter: 2014Q3

REPORT INFORMATION
  Report Type: Report from Study
  Country: DE (occurrence: DE)
  Receive Date: 20130328
  Receipt Date: 20140912
  Transmission Date: 20150326
  Serious: Yes (Hospitalization, Other)
  Sender: FDA-Public Use
  Company Number: DE-CELGENEUS-062-C5013-13032668

PATIENT
  Age: 74 Year
  Sex: Male
  Weight: 80.5 kg

DRUGS (9)
  1. ASA [Concomitant]
     Active Substance: ASPIRIN
     Indication: THROMBOSIS PROPHYLAXIS
     Dosage: 100 MILLIGRAM
     Route: 048
     Dates: start: 20110207
  2. MOVICOL [Concomitant]
     Active Substance: POLYETHYLENE GLYCOL 3350\POTASSIUM CHLORIDE\SODIUM BICARBONATE\SODIUM CHLORIDE
     Indication: CONSTIPATION
     Route: 048
  3. DULCOLAX [Concomitant]
     Active Substance: BISACODYL OR DOCUSATE SODIUM
     Indication: CONSTIPATION
     Route: 048
  4. TAVANIC [Concomitant]
     Active Substance: LEVOFLOXACIN
     Indication: NASOPHARYNGITIS
     Dosage: 500 MILLIGRAM
     Route: 048
     Dates: start: 20111017
  5. CC-5013 [Suspect]
     Active Substance: LENALIDOMIDE
     Indication: CHRONIC LYMPHOCYTIC LEUKAEMIA
     Dosage: DOSE LEVEL 0
     Route: 048
     Dates: start: 20110207
  6. OCTAGAM IMMUNE GLOBULIN (HUMAN) [Concomitant]
     Active Substance: HUMAN IMMUNOGLOBULIN G
     Indication: IMMUNODEFICIENCY
     Dosage: 20 GRAM
     Route: 041
     Dates: start: 20130304, end: 20130304
  7. CC-5013 [Suspect]
     Active Substance: LENALIDOMIDE
     Dosage: DOSE LEVEL 0
     Route: 048
     Dates: start: 20130410
  8. GLIMEPIRID [Concomitant]
     Indication: DIABETES MELLITUS
     Dosage: 2 MILLIGRAM
     Route: 048
     Dates: start: 20110127
  9. CC-5013 [Suspect]
     Active Substance: LENALIDOMIDE
     Route: 048
     Dates: start: 20130304, end: 20130328

REACTIONS (2)
  - Squamous cell carcinoma of skin [Recovered/Resolved]
  - Actinic keratosis [Recovered/Resolved]

NARRATIVE: CASE EVENT DATE: 20130308
